FAERS Safety Report 6256243-8 (Version None)
Quarter: 2009Q3

REPORT INFORMATION
  Report Type: 
  Country: None (occurrence: None)
  Receive Date: 20090706
  Receipt Date: 20090406
  Transmission Date: 20100115
  Serious: Yes (Hospitalization)
  Sender: FDA-Public Use
  Company Number: A0777373A

PATIENT
  Age: 89 Year
  Sex: Female

DRUGS (7)
  1. ADVAIR HFA [Suspect]
     Indication: DRUG USE FOR UNKNOWN INDICATION
     Dosage: 2PUFF TWICE PER DAY
     Route: 055
     Dates: end: 20090301
  2. PLAVIX [Concomitant]
  3. ASPIRIN [Concomitant]
  4. UNKNOWN [Concomitant]
  5. NEXIUM [Concomitant]
  6. NITROGLYN 2% OINTMENT [Concomitant]
  7. UNKNOWN [Concomitant]

REACTIONS (1)
  - INFLUENZA [None]
